FAERS Safety Report 25304365 (Version 1)
Quarter: 2025Q2

REPORT INFORMATION
  Report Type: Spontaneous
  Country: US (occurrence: US)
  Receive Date: 20250513
  Receipt Date: 20250513
  Transmission Date: 20250717
  Serious: No
  Sender: KINIKSA PHARMACEUTICALS
  Company Number: US-KINIKSA PHARMACEUTICALS LTD.-2025KPU001209

PATIENT
  Sex: Male

DRUGS (1)
  1. RILONACEPT [Suspect]
     Active Substance: RILONACEPT
     Indication: Product used for unknown indication

REACTIONS (1)
  - Blood triglycerides increased [Unknown]
